FAERS Safety Report 7388695-4 (Version None)
Quarter: 2011Q2

REPORT INFORMATION
  Report Type: 
  Country: None (occurrence: None)
  Receive Date: 20110401
  Receipt Date: 20110322
  Transmission Date: 20111010
  Serious: Yes (Other)
  Sender: FDA-Public Use
  Company Number: US-JNJFOC-20110311483

PATIENT
  Age: 64 Year
  Sex: Female
  Weight: 79.38 kg

DRUGS (3)
  1. LISTERINE TOTAL CARE PLUS WHITENING [Suspect]
     Indication: PRODUCT USED FOR UNKNOWN INDICATION
     Dosage: HALF CAPFUL
     Route: 048
  2. PROZAC [Concomitant]
     Indication: DEPRESSION
     Route: 065
  3. LIPITOR [Concomitant]
     Indication: PRODUCT USED FOR UNKNOWN INDICATION
     Route: 048

REACTIONS (4)
  - GLOSSODYNIA [None]
  - GINGIVAL PAIN [None]
  - APPLICATION SITE VESICLES [None]
  - DYSGEUSIA [None]
